FAERS Safety Report 7756785-X (Version None)
Quarter: 2011Q3

REPORT INFORMATION
  Report Type: 
  Country: None (occurrence: None)
  Receive Date: 20110916
  Receipt Date: 20110908
  Transmission Date: 20111222
  Serious: Yes (Other)
  Sender: FDA-Public Use
  Company Number: US-JNJFOC-20110802227

PATIENT
  Sex: Female

DRUGS (4)
  1. CELEXA [Concomitant]
     Route: 065
  2. INVEGA SUSTENNA [Suspect]
     Indication: SCHIZOPHRENIA
     Route: 030
     Dates: start: 20110725
  3. WELLBUTRIN [Concomitant]
     Route: 048
  4. INVEGA SUSTENNA [Suspect]
     Route: 030
     Dates: start: 20110101

REACTIONS (2)
  - EYE MOVEMENT DISORDER [None]
  - MUSCLE SPASMS [None]
